FAERS Safety Report 4684114-7 (Version None)
Quarter: 2005Q2

REPORT INFORMATION
  Report Type: 
  Country: None (occurrence: None)
  Receive Date: 20050607
  Receipt Date: 20050601
  Transmission Date: 20051028
  Serious: Yes (Other)
  Sender: FDA-Public Use
  Company Number: US-BRISTOL-MYERS SQUIBB COMPANY-12990669

PATIENT
  Sex: Female

DRUGS (4)
  1. ESTRACE [Suspect]
     Indication: MENOPAUSE
     Dates: start: 20021201, end: 20030601
  2. PREMARIN [Suspect]
     Indication: MENOPAUSE
     Dates: start: 19940101, end: 20021201
  3. PROVERA [Suspect]
     Indication: MENOPAUSE
     Dates: start: 19940101, end: 20021201
  4. PREMPRO (PREMARIN;CYCRIN 14/14) [Suspect]
     Indication: MENOPAUSE
     Dates: start: 19990901, end: 19991201

REACTIONS (1)
  - BREAST CANCER [None]
